FAERS Safety Report 4358145-0 (Version None)
Quarter: 2004Q2

REPORT INFORMATION
  Report Type: 
  Country: None (occurrence: None)
  Receive Date: 20040511
  Receipt Date: 20040426
  Transmission Date: 20050107
  Serious: Yes (Hospitalization)
  Sender: FDA-Public Use
  Company Number: 2004027953

PATIENT
  Age: 47 Year
  Sex: Male
  Weight: 85 kg

DRUGS (6)
  1. TAHOR (ATORVASTATIN) [Suspect]
     Indication: ILL-DEFINED DISORDER
     Dosage: 40 MG, ORAL
     Route: 048
     Dates: start: 19981215, end: 19991104
  2. LISINOPRIL [Suspect]
     Indication: ILL-DEFINED DISORDER
     Dosage: 10 MG, ORAL
     Route: 048
     Dates: start: 19981215
  3. ACETYLSALICYLIC ACID SRT [Suspect]
     Indication: ILL-DEFINED DISORDER
     Dosage: 250 MG, ORAL
     Route: 048
     Dates: start: 19981215
  4. VERAPAMIL HCL [Suspect]
     Indication: ILL-DEFINED DISORDER
     Dosage: 240 MG, ORAL
     Route: 048
     Dates: start: 19981215
  5. TICLOPIDINE HCL [Suspect]
     Indication: ACUTE MYOCARDIAL INFARCTION
     Dosage: 250 MG, ORAL
     Route: 048
     Dates: start: 19981215, end: 19991104
  6. BUFLOMEDIL HYDROCHLORIDE (BUFLOMEDIL HYDROCHLORIDE) [Suspect]
     Indication: ILL-DEFINED DISORDER
     Dosage: 900 MG, ORAL
     Route: 048
     Dates: start: 19981215

REACTIONS (2)
  - BONE MARROW TOXICITY [None]
  - PANCYTOPENIA [None]
